APPROVED DRUG PRODUCT: GARAMYCIN
Active Ingredient: GENTAMICIN SULFATE
Strength: EQ 0.3% BASE **Federal Register determination that product was not discontinued or withdrawn for safety or effectiveness reasons**
Dosage Form/Route: SOLUTION/DROPS;OPHTHALMIC
Application: N050039 | Product #002
Applicant: SCHERING CORP SUB SCHERING PLOUGH CORP
Approved: Approved Prior to Jan 1, 1982 | RLD: Yes | RS: No | Type: DISCN